FAERS Safety Report 8756328 (Version 2)
Quarter: 2013Q1

REPORT INFORMATION
  Report Type: Spontaneous
  Country: US (occurrence: None)
  Receive Date: 20120814
  Receipt Date: 20121113
  Transmission Date: 20140127
  Serious: Yes (Hospitalization)
  Sender: FDA-Public Use
  Company Number: 2012SGN00342

PATIENT
  Age: 33 Year
  Sex: Female

DRUGS (1)
  1. ADCETRIS [Suspect]
     Indication: HODGKIN^S DISEASE
     Dates: end: 20120621

REACTIONS (5)
  - Interstitial lung disease [None]
  - Pain [None]
  - Dysstasia [None]
  - Asthenia [None]
  - Pleural effusion [None]
